FAERS Safety Report 24238885 (Version 2)
Quarter: 2024Q3

REPORT INFORMATION
  Report Type: Spontaneous
  Country: US (occurrence: US)
  Receive Date: 20240822
  Receipt Date: 20240904
  Transmission Date: 20241016
  Serious: Yes (Other)
  Sender: ORGANON
  Company Number: US-ORGANON-O2408USA001389

PATIENT

DRUGS (6)
  1. SINGULAIR [Suspect]
     Active Substance: MONTELUKAST SODIUM
     Indication: Mechanical urticaria
     Dosage: UNK
     Route: 048
  2. SINGULAIR [Suspect]
     Active Substance: MONTELUKAST SODIUM
     Indication: Chronic spontaneous urticaria
  3. FEXOFENADINE HYDROCHLORIDE [Suspect]
     Active Substance: FEXOFENADINE HYDROCHLORIDE
     Indication: Mechanical urticaria
     Dosage: INCREASED DOSAGE TO 3
  4. FEXOFENADINE HYDROCHLORIDE [Suspect]
     Active Substance: FEXOFENADINE HYDROCHLORIDE
     Indication: Chronic spontaneous urticaria
  5. XOLAIR [Suspect]
     Active Substance: OMALIZUMAB
     Indication: Mechanical urticaria
     Dosage: NOW PATIENT HAD 2 DOSES, 3RD DOSE WAS ABOUT A WEEK AND A HALF AWAY
  6. XOLAIR [Suspect]
     Active Substance: OMALIZUMAB
     Indication: Chronic spontaneous urticaria

REACTIONS (5)
  - Systemic lupus erythematosus [Unknown]
  - Mechanical urticaria [Not Recovered/Not Resolved]
  - Idiopathic urticaria [Not Recovered/Not Resolved]
  - Pruritus [Not Recovered/Not Resolved]
  - Product use in unapproved indication [Unknown]

NARRATIVE: CASE EVENT DATE: 20231001
